FAERS Safety Report 6287567-6 (Version None)
Quarter: 2009Q3

REPORT INFORMATION
  Report Type: 
  Country: None (occurrence: None)
  Receive Date: 20090727
  Receipt Date: 20090714
  Transmission Date: 20100115
  Serious: Yes (Hospitalization)
  Sender: FDA-Public Use
  Company Number: 232494K08USA

PATIENT
  Age: 43 Year
  Sex: Female
  Weight: 91 kg

DRUGS (6)
  1. REBIF [Suspect]
     Indication: MULTIPLE SCLEROSIS
     Dosage: 44 MCG, 3 IN 1 WEEKS, SUBCUTANEOUS
     Route: 058
     Dates: start: 20080923
  2. METOPROLOL (METOPROLOL /00376901/) [Concomitant]
  3. NORVASC [Concomitant]
  4. ANTIDEPRESSANT (ALL OTHER THERAPEUTIC PRODUCTS) [Concomitant]
  5. VITAMIN D [Concomitant]
  6. VITAMIN B COMPLEX (B-KOMPLEX) [Concomitant]

REACTIONS (1)
  - THYROID CANCER [None]
